FAERS Safety Report 11414084 (Version 1)
Quarter: 2015Q3

REPORT INFORMATION
  Report Type: Spontaneous
  Country: TR (occurrence: TR)
  Receive Date: 20150824
  Receipt Date: 20150824
  Transmission Date: 20151125
  Serious: Yes (Hospitalization)
  Sender: FDA-Public Use
  Company Number: TR-MYLANLABS-2015M1028340

PATIENT

DRUGS (1)
  1. WARFARIN [Suspect]
     Active Substance: WARFARIN
     Indication: PULMONARY EMBOLISM
     Dosage: 5 MG/DAY
     Route: 065

REACTIONS (3)
  - Pericardial haemorrhage [Recovered/Resolved]
  - Incorrect dosage administered [Recovered/Resolved]
  - Cardiac tamponade [Recovered/Resolved]
